FAERS Safety Report 17065633 (Version 1)
Quarter: 2019Q4

REPORT INFORMATION
  Report Type: Spontaneous
  Country: US (occurrence: US)
  Receive Date: 20191122
  Receipt Date: 20191122
  Transmission Date: 20200122
  Serious: Yes (Disabling)
  Sender: FDA-Public Use
  Company Number: None

PATIENT
  Age: 50 Year
  Sex: Female
  Weight: 81.9 kg

DRUGS (3)
  1. RANITIDINE. [Suspect]
     Active Substance: RANITIDINE
     Indication: GASTROOESOPHAGEAL REFLUX DISEASE
     Dosage: ?          QUANTITY:30 TABLET(S);?
     Route: 048
     Dates: start: 20170111, end: 20191015
  2. ALBUTEROL. [Concomitant]
     Active Substance: ALBUTEROL
  3. CPAP MACHINE [Concomitant]

REACTIONS (5)
  - Weight increased [None]
  - Gastrointestinal pain [None]
  - Gallbladder injury [None]
  - Abdominal rigidity [None]
  - Gastrooesophageal reflux disease [None]

NARRATIVE: CASE EVENT DATE: 20191015
